FAERS Safety Report 7531423-X (Version None)
Quarter: 2011Q2

REPORT INFORMATION
  Report Type: 
  Country: None (occurrence: None)
  Receive Date: 20110608
  Receipt Date: 20110601
  Transmission Date: 20111010
  Serious: Yes (Hospitalization, Other)
  Sender: FDA-Public Use
  Company Number: US-AMGEN-USASP2011020762

PATIENT
  Age: 71 Year
  Sex: Female

DRUGS (2)
  1. HUMIRA [Concomitant]
  2. ENBREL [Suspect]
     Indication: RHEUMATOID ARTHRITIS
     Dosage: 50 MG, QWK
     Dates: start: 20000101

REACTIONS (8)
  - DEHYDRATION [None]
  - RHEUMATOID ARTHRITIS [None]
  - MYALGIA [None]
  - INJECTION SITE ERYTHEMA [None]
  - DECREASED APPETITE [None]
  - PYREXIA [None]
  - AUTOIMMUNE THROMBOCYTOPENIA [None]
  - URINARY TRACT INFECTION [None]
